FAERS Safety Report 8331051-2 (Version None)
Quarter: 2012Q2

REPORT INFORMATION
  Report Type: 
  Country: None (occurrence: None)
  Receive Date: 20120502
  Receipt Date: 20120410
  Transmission Date: 20120825
  Serious: No
  Sender: FDA-Public Use
  Company Number: US-AMGEN-USASP2011025308

PATIENT
  Age: 46 Year
  Sex: Female

DRUGS (1)
  1. ENBREL [Suspect]
     Indication: RHEUMATOID ARTHRITIS
     Dosage: 50 MG, QWK
     Dates: start: 20110429

REACTIONS (11)
  - PAIN IN EXTREMITY [None]
  - UPPER RESPIRATORY TRACT INFECTION [None]
  - INJECTION SITE ERYTHEMA [None]
  - JOINT SWELLING [None]
  - LIGAMENT PAIN [None]
  - INJECTION SITE SWELLING [None]
  - FATIGUE [None]
  - HEADACHE [None]
  - SWELLING [None]
  - UTERINE LEIOMYOMA [None]
  - OEDEMA PERIPHERAL [None]
